FAERS Safety Report 24991127 (Version 1)
Quarter: 2025Q1

REPORT INFORMATION
  Report Type: Spontaneous
  Country: US (occurrence: US)
  Receive Date: 20250220
  Receipt Date: 20250220
  Transmission Date: 20250408
  Serious: Yes (Other)
  Sender: FERRING
  Company Number: US-FERRINGPH-2025FE00683

PATIENT

DRUGS (1)
  1. ADSTILADRIN [Suspect]
     Active Substance: NADOFARAGENE FIRADENOVEC-VNCG
     Indication: Product used for unknown indication
     Route: 065
     Dates: start: 20250205

REACTIONS (3)
  - Dizziness [Unknown]
  - Fatigue [Unknown]
  - Micturition urgency [Unknown]

NARRATIVE: CASE EVENT DATE: 20250201
